FAERS Safety Report 23233397 (Version 1)
Quarter: 2023Q4

REPORT INFORMATION
  Report Type: Report from Study
  Country: ZA (occurrence: ZA)
  Receive Date: 20231128
  Receipt Date: 20231128
  Transmission Date: 20240109
  Serious: Yes (Other)
  Sender: FDA-Public Use
  Company Number: ZA-GILEAD-2023-0643752

PATIENT
  Age: 22 Year
  Sex: Female
  Weight: 43.2 kg

DRUGS (14)
  1. EMTRICITABINE\TENOFOVIR [Suspect]
     Active Substance: EMTRICITABINE\TENOFOVIR
     Indication: Prophylaxis against HIV infection
     Dosage: 200/25 MG QD
     Route: 048
     Dates: start: 20230818
  2. PLACEBO [Suspect]
     Active Substance: UNSPECIFIED INGREDIENT
     Indication: Prophylaxis against HIV infection
     Dosage: 600 MG, ONCE
     Route: 048
     Dates: start: 20230818, end: 20230819
  3. PLACEBO [Suspect]
     Active Substance: UNSPECIFIED INGREDIENT
     Dosage: 463.5 MG, ONCE
     Route: 058
     Dates: start: 20230818, end: 20230818
  4. NORETHINDRONE [Concomitant]
     Active Substance: NORETHINDRONE
     Dosage: UNK
     Dates: start: 20230818
  5. ACETAMINOPHEN [Concomitant]
     Active Substance: ACETAMINOPHEN
     Indication: Injection site pain
     Dosage: UNK
     Route: 048
     Dates: start: 20230818
  6. ACETAMINOPHEN [Concomitant]
     Active Substance: ACETAMINOPHEN
     Dosage: UNK
     Route: 048
     Dates: start: 20231116
  7. NORETHINDRONE ENANTHATE [Concomitant]
     Active Substance: NORETHINDRONE ENANTHATE
     Indication: Prophylaxis
     Route: 030
     Dates: start: 20230818
  8. FERROUS SULFATE [Concomitant]
     Active Substance: FERROUS SULFATE
     Indication: Supplementation therapy
     Route: 048
     Dates: start: 20230929
  9. FOLIC ACID [Concomitant]
     Active Substance: FOLIC ACID
     Indication: Supplementation therapy
     Route: 048
     Dates: start: 20230929
  10. VITAMIN B [Concomitant]
     Active Substance: VITAMIN B
     Indication: Supplementation therapy
     Route: 048
     Dates: start: 20230929
  11. VITAMIN C [Concomitant]
     Active Substance: ASCORBIC ACID
  12. DICLOFENAC [Concomitant]
     Active Substance: DICLOFENAC
     Indication: Abortion spontaneous
     Dosage: UNK
     Route: 030
     Dates: start: 20231116, end: 20231116
  13. NUR ISTERATE [Concomitant]
     Indication: Contraception
  14. TETANUS TOXOIDS [Concomitant]
     Active Substance: TETANUS TOXOIDS
     Dosage: UNK
     Dates: start: 20230926

REACTIONS (3)
  - Abortion spontaneous [Recovered/Resolved]
  - Maternal exposure during pregnancy [Not Recovered/Not Resolved]
  - Intentional product misuse [Recovered/Resolved]

NARRATIVE: CASE EVENT DATE: 20230913
